FAERS Safety Report 9671203 (Version 2)
Quarter: 2013Q4

REPORT INFORMATION
  Report Type: Spontaneous
  Country: FR (occurrence: FR)
  Receive Date: 20131106
  Receipt Date: 20131202
  Transmission Date: 20140711
  Serious: Yes (Other)
  Sender: FDA-Public Use
  Company Number: FR-NOVOPROD-391544

PATIENT
  Age: 84 Year
  Sex: Male
  Weight: 83 kg

DRUGS (12)
  1. NOVOMIX 30 FLEXPEN [Suspect]
     Indication: TYPE 2 DIABETES MELLITUS
     Dosage: 14 IU, QD
     Route: 065
     Dates: start: 201211
  2. NOVOMIX 30 FLEXPEN [Suspect]
     Dosage: 14 IU, QD
     Route: 065
     Dates: start: 201310
  3. NOVOMIX 30 FLEXPEN [Suspect]
     Dosage: 10 IU, QD
     Route: 065
  4. NOVOMIX 30 FLEXPEN [Suspect]
     Dosage: UNK
     Route: 065
     Dates: start: 20131026
  5. KARDEGIC [Concomitant]
     Indication: ANGINA PECTORIS
     Dosage: 75 MG, QD
     Route: 048
  6. ADENURIC [Concomitant]
     Indication: HYPERURICAEMIA
     Dosage: 80 MG, QD
     Route: 048
  7. NOVONORM [Concomitant]
     Indication: DIABETES MELLITUS
     Dosage: 12 MG, QD
     Route: 048
  8. LASILIX                            /00032601/ [Concomitant]
     Indication: PRODUCT USED FOR UNKNOWN INDICATION
     Dosage: 80 MG, QD
     Route: 048
  9. LEVOTHYROX [Concomitant]
     Indication: HYPOTHYROIDISM
     Dosage: 50 UG, QD
     Route: 048
  10. INEGY [Concomitant]
     Indication: HYPERCHOLESTEROLAEMIA
     Dosage: 20 MG, QD
     Route: 048
  11. TENORMINE [Concomitant]
     Indication: PRODUCT USED FOR UNKNOWN INDICATION
     Dosage: 100 MG, QD
     Route: 048
  12. XATRAL [Concomitant]
     Indication: PRODUCT USED FOR UNKNOWN INDICATION
     Dosage: XATRAL LP 10

REACTIONS (2)
  - Renal failure [Recovered/Resolved with Sequelae]
  - Hypoglycaemia [Recovering/Resolving]
